FAERS Safety Report 23370220 (Version 4)
Quarter: 2024Q1

REPORT INFORMATION
  Report Type: Spontaneous
  Country: US (occurrence: US)
  Receive Date: 20240105
  Receipt Date: 20240313
  Transmission Date: 20240410
  Serious: Yes (Other)
  Sender: FDA-Public Use
  Company Number: US-GLK-002298

PATIENT
  Sex: Female

DRUGS (6)
  1. PHOTREXA [Suspect]
     Active Substance: RIBOFLAVIN 5^-PHOSPHATE SODIUM
     Indication: Corneal disorder
     Route: 047
     Dates: start: 20231027, end: 20231027
  2. PHOTREXA VISCOUS [Suspect]
     Active Substance: RIBOFLAVIN 5^-PHOSPHATE SODIUM
     Indication: Corneal disorder
     Route: 047
     Dates: start: 20231027, end: 20231027
  3. PREDNISOLONE [Concomitant]
     Active Substance: PREDNISOLONE
     Indication: Prophylaxis
     Dosage: 5 WEEK TAPER [QID (FOUR TIMES A DAY); QID; TID (THREE TIMES A DAY); BID (TWO TIMES A DAY); BID]
     Route: 047
  4. OFLOXACIN [Concomitant]
     Active Substance: OFLOXACIN
     Indication: Antibiotic prophylaxis
     Route: 047
  5. Artificial tears [Concomitant]
     Route: 047
  6. FLUORESCEIN [Suspect]
     Active Substance: FLUORESCEIN
     Indication: Product used for unknown indication
     Dosage: A DROP OF FLUORESCEIN FOLLOWING EPI DEBRIDEMENT
     Dates: start: 20231027, end: 20231027

REACTIONS (6)
  - Keratoplasty [Unknown]
  - Corneal scar [Not Recovered/Not Resolved]
  - Visual acuity reduced [Not Recovered/Not Resolved]
  - Corneal infiltrates [Unknown]
  - Corneal opacity [Unknown]
  - Impaired healing [Unknown]

NARRATIVE: CASE EVENT DATE: 20230101
